FAERS Safety Report 5057132-7 (Version None)
Quarter: 2006Q2

REPORT INFORMATION
  Report Type: 
  Country: None (occurrence: None)
  Receive Date: 20060622
  Receipt Date: 20050701
  Transmission Date: 20061013
  Serious: Yes (Life-Threatening, Hospitalization)
  Sender: FDA-Public Use
  Company Number: US-JNJFOC-20050302955

PATIENT
  Age: 47 Year
  Sex: Male
  Weight: 109.7705 kg

DRUGS (3)
  1. FENTANYL TRANSDERMAL SYSTEM [Suspect]
     Indication: PAIN
     Dosage: 100 UG/HR, 1 IN 72 HOUR, TRANSDERMAL
     Route: 062
  2. MS CONTIN [Concomitant]
  3. SOMA [Concomitant]

REACTIONS (6)
  - DIZZINESS [None]
  - HYPERHIDROSIS [None]
  - NAUSEA [None]
  - OVERDOSE [None]
  - RESPIRATORY ARREST [None]
  - RESPIRATORY DEPRESSION [None]
